APPROVED DRUG PRODUCT: COLY-MYCIN M
Active Ingredient: COLISTIMETHATE SODIUM
Strength: EQ 150MG BASE/VIAL
Dosage Form/Route: INJECTABLE;INJECTION
Application: N050108 | Product #002 | TE Code: AP
Applicant: PH HEALTH LTD
Approved: Approved Prior to Jan 1, 1982 | RLD: Yes | RS: Yes | Type: RX